FAERS Safety Report 22102470 (Version 2)
Quarter: 2023Q1

REPORT INFORMATION
  Report Type: Spontaneous
  Country: CN (occurrence: CN)
  Receive Date: 20230316
  Receipt Date: 20230320
  Transmission Date: 20230418
  Serious: Yes (Other)
  Sender: FDA-Public Use
  Company Number: CN-MLMSERVICE-20230306-4146400-1

PATIENT
  Age: 60 Year
  Sex: Male

DRUGS (3)
  1. METHYLPREDNISOLONE [Suspect]
     Active Substance: METHYLPREDNISOLONE
     Indication: Immunosuppressant drug therapy
     Dosage: SEVERAL YEARS
     Route: 048
  2. ZOLPIDEM TARTRATE [Concomitant]
     Active Substance: ZOLPIDEM TARTRATE
     Indication: Insomnia
     Dosage: 10 MG AT BEDTIME
     Route: 048
  3. ZOLPIDEM TARTRATE [Concomitant]
     Active Substance: ZOLPIDEM TARTRATE
     Indication: Anxiety

REACTIONS (9)
  - Veillonella infection [Recovered/Resolved]
  - Neisseria infection [Recovered/Resolved]
  - Epstein-Barr virus infection [Recovered/Resolved]
  - Leukoplakia oral [Recovered/Resolved]
  - Oral candidiasis [Recovered/Resolved]
  - Actinomycosis [Recovered/Resolved]
  - Stomatococcal infection [Recovered/Resolved]
  - Oral bacterial infection [Recovered/Resolved]
  - Off label use [Unknown]
